FAERS Safety Report 7145286-8 (Version None)
Quarter: 2010Q4

REPORT INFORMATION
  Report Type: 
  Country: None (occurrence: None)
  Receive Date: 20101208
  Receipt Date: 20101129
  Transmission Date: 20110411
  Serious: Yes (Hospitalization)
  Sender: FDA-Public Use
  Company Number: CN-NOVOPROD-319380

PATIENT
  Age: 68 Year
  Sex: Female

DRUGS (2)
  1. NOVOLIN R [Suspect]
     Indication: DIABETES MELLITUS
     Dosage: INTERMITTENTLY
  2. XIAOKE [Suspect]
     Indication: DIABETES MELLITUS
     Route: 048

REACTIONS (3)
  - HYPERGLYCAEMIA [None]
  - HYPOGLYCAEMIA [None]
  - HYPOPITUITARISM [None]
